FAERS Safety Report 21727511 (Version 1)
Quarter: 2022Q4

REPORT INFORMATION
  Report Type: Spontaneous
  Country: JP (occurrence: JP)
  Receive Date: 20221214
  Receipt Date: 20221214
  Transmission Date: 20230112
  Serious: Yes (Other)
  Sender: FDA-Public Use
  Company Number: JP-UCBJ-CD202212741UCBPHAPROD

PATIENT
  Age: 18 Year
  Sex: Female

DRUGS (1)
  1. LEVETIRACETAM [Suspect]
     Active Substance: LEVETIRACETAM
     Indication: Epilepsy
     Route: 048
     Dates: start: 2017, end: 202208

REACTIONS (12)
  - Suicide attempt [Not Recovered/Not Resolved]
  - Intentional self-injury [Unknown]
  - Hallucination, auditory [Unknown]
  - Hallucination [Unknown]
  - Somnolence [Unknown]
  - Depressed mood [Unknown]
  - Anxiety [Not Recovered/Not Resolved]
  - Insomnia [Not Recovered/Not Resolved]
  - Somniphobia [Unknown]
  - Persecutory delusion [Unknown]
  - School refusal [Unknown]
  - Underdose [Unknown]

NARRATIVE: CASE EVENT DATE: 20220801
